FAERS Safety Report 17702805 (Version 1)
Quarter: 2020Q2

REPORT INFORMATION
  Report Type: Report from Study
  Country: None (occurrence: GB)
  Receive Date: 20200424
  Receipt Date: 20200424
  Transmission Date: 20200714
  Serious: Yes (Death, Hospitalization)
  Sender: FDA-Public Use
  Company Number: GB-ABBVIE-20K-167-3373432-00

PATIENT
  Age: 75 Year
  Sex: Male

DRUGS (2)
  1. DUODOPA [Suspect]
     Active Substance: CARBIDOPA\LEVODOPA
     Indication: PARKINSON^S DISEASE
     Dosage: 5MG/1ML?20MG/1ML?100ML CASSETTE?AS DIRECTED
     Route: 050
  2. DUODOPA [Suspect]
     Active Substance: CARBIDOPA\LEVODOPA
     Route: 050

REACTIONS (3)
  - Pneumonia viral [Unknown]
  - Coronavirus infection [Unknown]
  - Death [Fatal]

NARRATIVE: CASE EVENT DATE: 20200418
